FAERS Safety Report 7760775-0 (Version None)
Quarter: 2011Q3

REPORT INFORMATION
  Report Type: 
  Country: None (occurrence: None)
  Receive Date: 20110919
  Receipt Date: 20110909
  Transmission Date: 20111222
  Serious: Yes (Hospitalization)
  Sender: FDA-Public Use
  Company Number: US-ASTRAZENECA-2010SE27116

PATIENT
  Age: 76 Year
  Sex: Female
  Weight: 70.8 kg

DRUGS (6)
  1. CLONIDINE [Concomitant]
  2. NEXIUM [Suspect]
     Route: 048
  3. SEROQUEL [Suspect]
     Route: 048
     Dates: start: 20100101
  4. SEROQUEL [Suspect]
     Indication: SLEEP DISORDER
     Route: 048
     Dates: start: 20010101, end: 20100526
  5. OMEPRAZOLE [Concomitant]
  6. DIOVAN [Concomitant]

REACTIONS (7)
  - MUSCULOSKELETAL PAIN [None]
  - INSOMNIA [None]
  - PROCEDURAL PAIN [None]
  - DRUG DOSE OMISSION [None]
  - PLANTAR FASCIITIS [None]
  - ARTHRITIS [None]
  - PANIC ATTACK [None]
